FAERS Safety Report 16634109 (Version 1)
Quarter: 2019Q3

REPORT INFORMATION
  Report Type: Spontaneous
  Country: US (occurrence: US)
  Receive Date: 20190725
  Receipt Date: 20190725
  Transmission Date: 20191004
  Serious: No
  Sender: FDA-Public Use
  Company Number: US-ASTRAZENECA-2019SE94218

PATIENT
  Age: 60 Year
  Sex: Male

DRUGS (4)
  1. JANUVIA [Concomitant]
     Active Substance: SITAGLIPTIN PHOSPHATE
     Indication: DIABETES MELLITUS
     Dosage: UNKNOWN
  2. FARXIGA [Suspect]
     Active Substance: DAPAGLIFLOZIN PROPANEDIOL
     Indication: GLYCOSYLATED HAEMOGLOBIN ABNORMAL
     Route: 048
  3. METFORMIN [Concomitant]
     Active Substance: METFORMIN HYDROCHLORIDE
     Indication: DIABETES MELLITUS
     Dosage: UNKNOWN
  4. FARXIGA [Suspect]
     Active Substance: DAPAGLIFLOZIN PROPANEDIOL
     Indication: TYPE 2 DIABETES MELLITUS
     Route: 048

REACTIONS (1)
  - Agitation [Recovered/Resolved]
